FAERS Safety Report 6829864-9 (Version None)
Quarter: 2010Q3

REPORT INFORMATION
  Report Type: 
  Country: None (occurrence: None)
  Receive Date: 20100710
  Receipt Date: 20100609
  Transmission Date: 20110219
  Serious: Yes (Hospitalization)
  Sender: FDA-Public Use
  Company Number: FR-JNJFOC-20091104709

PATIENT
  Sex: Male

DRUGS (16)
  1. DIPIPERON [Suspect]
     Indication: PRODUCT USED FOR UNKNOWN INDICATION
     Route: 048
     Dates: start: 20090314, end: 20090522
  2. DIPIPERON [Suspect]
     Route: 048
     Dates: start: 20090314, end: 20090522
  3. IXPRIM [Suspect]
     Indication: PRODUCT USED FOR UNKNOWN INDICATION
     Route: 048
     Dates: end: 20090513
  4. NEXIUM [Suspect]
     Indication: PRODUCT USED FOR UNKNOWN INDICATION
     Route: 048
     Dates: end: 20090522
  5. LOXEN [Suspect]
     Indication: PRODUCT USED FOR UNKNOWN INDICATION
     Route: 048
  6. DEPAKENE [Suspect]
     Indication: PRODUCT USED FOR UNKNOWN INDICATION
     Route: 048
  7. VALIUM [Suspect]
     Indication: PRODUCT USED FOR UNKNOWN INDICATION
     Route: 048
     Dates: start: 20090512, end: 20090522
  8. FURADANTINE [Suspect]
     Indication: PRODUCT USED FOR UNKNOWN INDICATION
     Route: 048
     Dates: start: 20090516, end: 20090523
  9. DEROXAT [Suspect]
     Indication: PRODUCT USED FOR UNKNOWN INDICATION
     Route: 048
  10. LORAZEPAM [Suspect]
     Indication: PRODUCT USED FOR UNKNOWN INDICATION
     Route: 048
     Dates: end: 20090522
  11. KARDEGIC [Concomitant]
     Route: 048
  12. VITAMIN B COMPLEX CAP [Concomitant]
     Route: 048
  13. FORLAX [Concomitant]
     Indication: CONSTIPATION
     Route: 048
  14. AUGMENTIN '125' [Concomitant]
     Route: 042
     Dates: start: 20090522, end: 20090526
  15. OFLOCET [Concomitant]
     Route: 065
     Dates: start: 20090522, end: 20090526
  16. ACETAMINOPHEN [Concomitant]

REACTIONS (3)
  - DISORIENTATION [None]
  - FALL [None]
  - SOMNOLENCE [None]
